FAERS Safety Report 6725574-7 (Version None)
Quarter: 2010Q2

REPORT INFORMATION
  Report Type: 
  Country: None (occurrence: None)
  Receive Date: 20100514
  Receipt Date: 20100506
  Transmission Date: 20101027
  Serious: Yes (Life-Threatening)
  Sender: FDA-Public Use
  Company Number: IT-JNJFOC-20100504838

PATIENT
  Sex: Male

DRUGS (2)
  1. LEVOXACIN [Suspect]
     Indication: BRONCHOPNEUMOPATHY
     Route: 042
  2. DIFLUCAN [Suspect]
     Indication: BRONCHOPNEUMOPATHY
     Route: 042

REACTIONS (3)
  - CARDIAC ARREST [None]
  - TORSADE DE POINTES [None]
  - VENTRICULAR FIBRILLATION [None]
